FAERS Safety Report 4319976-6 (Version None)
Quarter: 2004Q1

REPORT INFORMATION
  Report Type: 
  Country: None (occurrence: None)
  Receive Date: 20040316
  Receipt Date: 20040227
  Transmission Date: 20041129
  Serious: Yes (Death)
  Sender: FDA-Public Use
  Company Number: USA020819231

PATIENT
  Age: 75 Year
  Sex: Female
  Weight: 85 kg

DRUGS (2)
  1. HUMALOG [Suspect]
     Indication: DIABETES MELLITUS
     Dosage: 27 U DAY
  2. HUMULIN N [Suspect]
     Indication: DIABETES MELLITUS
     Dosage: 70 U DAY
     Dates: start: 19960101

REACTIONS (2)
  - INJECTION SITE HAEMORRHAGE [None]
  - PHARMACEUTICAL PRODUCT COMPLAINT [None]
